FAERS Safety Report 18320984 (Version 1)
Quarter: 2020Q3

REPORT INFORMATION
  Report Type: Spontaneous
  Country: DE (occurrence: DE)
  Receive Date: 20200929
  Receipt Date: 20200929
  Transmission Date: 20201103
  Serious: Yes (Hospitalization)
  Sender: FDA-Public Use
  Company Number: DE-TEVA-2020-DE-1831395

PATIENT
  Age: 81 Year
  Sex: Male
  Weight: 90 kg

DRUGS (11)
  1. RAMIPRIL. [Suspect]
     Active Substance: RAMIPRIL
     Dosage: .5 DOSAGE FORMS DAILY; 5 MG, 0?0?0.5?0
     Route: 048
  2. TORASEMID [Concomitant]
     Active Substance: TORSEMIDE
     Dosage: 40 MILLIGRAM DAILY; UNIT DOSE : 20 MG, 1?1?0?0
     Route: 048
  3. PRAMIPEXOL [Concomitant]
     Active Substance: PRAMIPEXOLE
     Dosage: .54 MILLIGRAM DAILY; UNIT DOSE : 0.18 MG, 1?1?0?1
     Route: 048
  4. SPIRONOLACTON [Suspect]
     Active Substance: SPIRONOLACTONE
     Dosage: .5 DOSAGE FORMS DAILY; 50 MG, 0?0.5?0?0
     Route: 048
  5. LEVODOPA?CARBIDOPA [Concomitant]
     Active Substance: CARBIDOPA\LEVODOPA
     Dosage: 4 DOSAGE FORMS DAILY; 25|100 MG, 1?1?1?1, UNIT DOSE : 1 DOSAGE FORMS
     Route: 048
  6. SITAGLIPTIN [Suspect]
     Active Substance: SITAGLIPTIN
     Dosage: 50 MILLIGRAM DAILY; 0?1?0?0
     Route: 048
  7. BUDESONIDE W/FORMOTEROL FUMARATE [Concomitant]
     Active Substance: BUDESONIDE\FORMOTEROL FUMARATE
     Dosage: 2 DOSAGE FORMS DAILY; 200|6 MICROG, 1?0?1?0, UNIT DOSE : 1 DOSAGE FORMS
     Route: 055
  8. AMANTADIN [Concomitant]
     Active Substance: AMANTADINE
     Dosage: 100 MILLIGRAM DAILY; 1?0?0?0
     Route: 048
  9. LEVOTHYROXINE SODIUM. [Concomitant]
     Active Substance: LEVOTHYROXINE SODIUM
     Dosage: 75 MICROGRAM DAILY; 1?0?0?0
     Route: 048
  10. PREDNISOLON [Concomitant]
     Active Substance: PREDNISOLONE
     Dosage: 2 MILLIGRAM DAILY; 0?0?0?1
     Route: 048
  11. FEBUXOSTAT. [Suspect]
     Active Substance: FEBUXOSTAT
     Dosage: .5 DOSAGE FORMS DAILY; 80 MG, 0?0.5?0?0
     Route: 048

REACTIONS (3)
  - Oedema peripheral [Unknown]
  - General physical health deterioration [Unknown]
  - Fatigue [Unknown]
